FAERS Safety Report 6636862-7 (Version None)
Quarter: 2010Q1

REPORT INFORMATION
  Report Type: 
  Country: None (occurrence: None)
  Receive Date: 20100316
  Receipt Date: 20100310
  Transmission Date: 20100710
  Serious: Yes (Death)
  Sender: FDA-Public Use
  Company Number: DE-WYE-G05738710

PATIENT
  Sex: Male

DRUGS (35)
  1. TAZOBAC [Suspect]
     Indication: SEPSIS
     Route: 042
     Dates: start: 20080226, end: 20080306
  2. ZOVIRAX [Suspect]
     Indication: ENCEPHALITIS HERPES
     Route: 042
     Dates: start: 20080221, end: 20080225
  3. FORTUM [Suspect]
     Indication: SEPSIS
     Route: 042
     Dates: start: 20080221, end: 20080226
  4. VITAMIN B1 TAB [Concomitant]
     Indication: VITAMIN B1 DEFICIENCY
     Route: 042
     Dates: start: 20080221, end: 20080229
  5. HALDOL [Suspect]
     Indication: HALLUCINATION
     Route: 042
     Dates: start: 20080221, end: 20080222
  6. HALDOL [Suspect]
     Route: 042
     Dates: start: 20080224, end: 20080301
  7. HALDOL [Suspect]
     Route: 048
     Dates: start: 20080302, end: 20080306
  8. PARACETAMOL [Suspect]
     Indication: PYREXIA
     Dosage: UNKNOWN
     Route: 048
     Dates: start: 20080221, end: 20080306
  9. FRAGMIN [Suspect]
     Indication: THROMBOSIS PROPHYLAXIS
     Route: 058
     Dates: start: 20080221, end: 20080306
  10. AMINOVEL [Concomitant]
     Dosage: UNKNOWN
     Dates: start: 20080221, end: 20080306
  11. INSUMAN [Suspect]
     Indication: HYPERGLYCAEMIA
     Dosage: UNKNOWN
     Route: 042
     Dates: start: 20080221, end: 20080308
  12. VANCOMYCIN [Suspect]
     Indication: EAR INFECTION
     Route: 042
     Dates: start: 20080221, end: 20080301
  13. VANCOMYCIN [Suspect]
     Route: 042
     Dates: start: 20080306
  14. TAVOR [Suspect]
     Indication: HALLUCINATION
     Route: 042
     Dates: start: 20080221
  15. KONTRAST U [Concomitant]
     Dosage: 150 ML (FREQUENCY UNKNOWN)
     Route: 042
     Dates: start: 20080222, end: 20080222
  16. KONTRAST U [Concomitant]
     Dosage: 150 ML (FREQUENCY UNKNOWN
     Route: 042
     Dates: start: 20080228, end: 20080228
  17. KONTRAST U [Concomitant]
     Dosage: 150 ML (FREQUENCY UNKNOWN
     Route: 042
     Dates: start: 20080304, end: 20080305
  18. NEXIUM [Suspect]
     Dosage: 40 MG (FREQUENCY UNKNOWN)
     Route: 042
     Dates: start: 20080222
  19. LAVASEPT [Concomitant]
     Indication: ACNE
     Dosage: UNKNOWN
     Route: 061
     Dates: start: 20080223, end: 20080226
  20. ADVANTAN [Concomitant]
     Indication: ACNE
     Dosage: UNKNOWN
     Route: 061
     Dates: start: 20080225, end: 20080227
  21. SULFADIAZINE [Suspect]
     Indication: TOXOPLASMOSIS
     Route: 042
     Dates: start: 20080225, end: 20080306
  22. CALCIUM FOLINATE [Concomitant]
     Route: 048
     Dates: start: 20080225, end: 20080306
  23. NIZORAL [Concomitant]
     Indication: ACNE
     Dosage: UNKNOWN
     Route: 061
     Dates: start: 20080225, end: 20080306
  24. DARAPRIM [Suspect]
     Indication: TOXOPLASMOSIS
     Route: 048
     Dates: start: 20080225
  25. CILOXAN [Suspect]
     Indication: EAR INFECTION
     Dates: start: 20080227, end: 20080306
  26. LAVASEPT [Concomitant]
     Indication: EAR INFECTION
     Dates: start: 20080227, end: 20080306
  27. KONAKION [Concomitant]
     Dosage: UNKNOWN
     Route: 042
     Dates: start: 20080228, end: 20080305
  28. THIAMINE HYDROCHLORIDE [Concomitant]
     Dosage: 100 MG (FREQUENCY UNKNOWN)
     Route: 048
     Dates: start: 20080229, end: 20090306
  29. TAVANIC [Suspect]
     Indication: SEPSIS
     Route: 042
     Dates: start: 20080301, end: 20080306
  30. EUNERPAN [Concomitant]
     Indication: RESTLESSNESS
     Route: 048
     Dates: start: 20080304, end: 20080305
  31. SODIUM CHLORIDE [Concomitant]
     Indication: HYPONATRAEMIA
     Route: 048
     Dates: start: 20080305, end: 20080306
  32. MAGNESIOCARD [Concomitant]
     Route: 042
     Dates: start: 20080306, end: 20080306
  33. ARTERENOL [Concomitant]
     Dosage: UNKNOWN
     Route: 042
     Dates: start: 20080306, end: 20080308
  34. CLINDAMYCIN [Suspect]
     Indication: SEPSIS
     Route: 042
     Dates: start: 20080306
  35. ASPISOL [Suspect]
     Indication: THROMBOSIS PROPHYLAXIS
     Dosage: 250 MG (FREQUNECY UNKNOWN)
     Route: 042
     Dates: start: 20080221, end: 20080225

REACTIONS (2)
  - STEVENS-JOHNSON SYNDROME [None]
  - TOXIC EPIDERMAL NECROLYSIS [None]
